FAERS Safety Report 4333592-1 (Version None)
Quarter: 2004Q1

REPORT INFORMATION
  Report Type: 
  Country: None (occurrence: None)
  Receive Date: 20040329
  Receipt Date: 20040115
  Transmission Date: 20041129
  Serious: No
  Sender: FDA-Public Use
  Company Number: 04P-163-0247318-00

PATIENT
  Age: 59 Year
  Sex: Male
  Weight: 63.5036 kg

DRUGS (6)
  1. HUMIRA [Suspect]
     Indication: RHEUMATOID ARTHRITIS
     Dosage: 40 MG, 1 IN 2 WK, SUBCUTANEOUS
     Route: 058
     Dates: start: 20040108
  2. IPRATROPIUM BROMIDE [Concomitant]
  3. ALBUTEROL SULFATE [Concomitant]
  4. ADVAIR DISKUS 100/50 [Concomitant]
  5. BUCINDOLOL [Concomitant]
  6. CELECOXIB [Concomitant]

REACTIONS (2)
  - BURNING SENSATION [None]
  - COUGH [None]
